FAERS Safety Report 23428252 (Version 1)
Quarter: 2024Q1

REPORT INFORMATION
  Report Type: Spontaneous
  Country: US (occurrence: US)
  Receive Date: 20240122
  Receipt Date: 20240122
  Transmission Date: 20240410
  Serious: No
  Sender: FDA-Public Use
  Company Number: US-PFIZER INC-202400017567

PATIENT
  Age: 80 Year
  Sex: Male
  Weight: 92.063 kg

DRUGS (3)
  1. DEPO-TESTOSTERONE [Suspect]
     Active Substance: TESTOSTERONE CYPIONATE
     Indication: Cardiac disorder
     Dosage: 1 ML
  2. DEPO-TESTOSTERONE [Suspect]
     Active Substance: TESTOSTERONE CYPIONATE
     Indication: Bone disorder
     Dosage: 1 ML
  3. DEPO-TESTOSTERONE [Suspect]
     Active Substance: TESTOSTERONE CYPIONATE
     Indication: Energy increased
     Dosage: UNK (10ML VIAL)

REACTIONS (10)
  - Drug ineffective for unapproved indication [Unknown]
  - Off label use [Unknown]
  - Poor quality product administered [Unknown]
  - Drug withdrawal syndrome [Unknown]
  - Depression [Unknown]
  - Malaise [Recovering/Resolving]
  - Feeling abnormal [Unknown]
  - Nipple pain [Unknown]
  - Urinary tract disorder [Unknown]
  - Prostatomegaly [Unknown]

NARRATIVE: CASE EVENT DATE: 20240107
